FAERS Safety Report 6100091-6 (Version None)
Quarter: 2009Q1

REPORT INFORMATION
  Report Type: 
  Country: None (occurrence: None)
  Receive Date: 20090303
  Receipt Date: 20090302
  Transmission Date: 20090719
  Serious: Yes (Hospitalization)
  Sender: FDA-Public Use
  Company Number: D0060301A

PATIENT
  Age: 40 Year
  Sex: Female

DRUGS (4)
  1. AUGMENTIN '125' [Suspect]
     Indication: URINARY TRACT INFECTION
     Route: 048
     Dates: start: 20080211, end: 20080219
  2. AUGMENTIN '125' [Suspect]
     Indication: PERITONITIS
     Route: 042
     Dates: start: 19970101, end: 19970101
  3. CLAVULANATE POTASSIUM [Suspect]
     Indication: PERITONITIS
     Route: 042
     Dates: start: 19970101, end: 19970101
  4. LEVOTHYROXINE SODIUM [Concomitant]
     Route: 065

REACTIONS (14)
  - ASTHENIA [None]
  - AUTOIMMUNE THYROIDITIS [None]
  - CERVIX DISORDER [None]
  - DECREASED IMMUNE RESPONSIVENESS [None]
  - FATIGUE [None]
  - GASTRIC DISORDER [None]
  - GENERAL PHYSICAL HEALTH DETERIORATION [None]
  - NAUSEA [None]
  - PERFORMANCE STATUS DECREASED [None]
  - PRECANCEROUS CELLS PRESENT [None]
  - PYREXIA [None]
  - RENAL DISORDER [None]
  - SJOGREN'S SYNDROME [None]
  - VAGINAL DISORDER [None]
